FAERS Safety Report 9299413 (Version 2)
Quarter: 2013Q4

REPORT INFORMATION
  Report Type: Spontaneous
  Country: US (occurrence: US)
  Receive Date: 20130520
  Receipt Date: 20131108
  Transmission Date: 20140711
  Serious: Yes (Hospitalization)
  Sender: FDA-Public Use
  Company Number: US-B.I. PHARMACEUTICALS,INC./RIDGEFIELD-2013-BI-13963BP

PATIENT
  Age: 80 Year
  Sex: Female
  Weight: 81.65 kg

DRUGS (17)
  1. PRADAXA [Suspect]
     Indication: ANTICOAGULANT THERAPY
     Dosage: 300 MG
     Route: 048
     Dates: start: 20111006, end: 20111026
  2. ACETAMINOPHEN [Concomitant]
     Indication: PAIN
  3. ALLOPURINOL [Concomitant]
     Dosage: 100 MG
     Route: 048
  4. ASPIRIN [Concomitant]
     Dosage: 81 MG
  5. BUMEX [Concomitant]
     Dosage: 1 MG
  6. CALCIUM [Concomitant]
     Indication: PAIN
  7. COREG [Concomitant]
     Indication: PAIN
     Route: 048
  8. SENSIPAR [Concomitant]
     Dosage: 30 MG
     Route: 048
  9. SENOKOT [Concomitant]
     Indication: PAIN
  10. COLACE [Concomitant]
     Indication: PAIN
  11. NEXIUM [Concomitant]
     Dosage: 40 MG
     Route: 048
  12. IRON [Concomitant]
     Dosage: 900 MG
     Route: 048
  13. NEURONTIN [Concomitant]
     Dosage: 200 MG
     Route: 048
  14. INSULIN NOVOLOG [Concomitant]
     Indication: PAIN
  15. INSULIN GLARGINE [Concomitant]
     Indication: PAIN
  16. LISINOPRIL [Concomitant]
     Dosage: 10 MG
     Route: 048
  17. CRESTOR [Concomitant]
     Indication: PAIN
     Route: 048

REACTIONS (3)
  - Gastrointestinal haemorrhage [Unknown]
  - Anaemia [Unknown]
  - Coagulopathy [Unknown]
